FAERS Safety Report 8783182 (Version 2)
Quarter: 2012Q4

REPORT INFORMATION
  Report Type: Report from Study
  Country: CA (occurrence: CA)
  Receive Date: 20120913
  Receipt Date: 20120925
  Transmission Date: 20130627
  Serious: Yes (Other)
  Sender: FDA-Public Use
  Company Number: CA-ROCHE-1105632

PATIENT
  Age: 39 Year
  Sex: Female
  Weight: 80 kg

DRUGS (7)
  1. AVASTIN [Suspect]
     Indication: GLIOBLASTOMA
     Dosage: Last dose prior to event on 03/Aug/2012
     Route: 042
     Dates: start: 20120404
  2. AVASTIN [Suspect]
     Route: 065
     Dates: start: 20120503
  3. AVASTIN [Suspect]
     Route: 065
     Dates: start: 20120713, end: 20120803
  4. DECADRON [Concomitant]
  5. SENOKOT [Concomitant]
  6. COLACE [Concomitant]
  7. HYDROMORPHONE [Concomitant]

REACTIONS (12)
  - Fatigue [Unknown]
  - Abdominal pain [Not Recovered/Not Resolved]
  - Disease progression [Not Recovered/Not Resolved]
  - Incorrect dose administered [Unknown]
  - Movement disorder [Unknown]
  - Fatigue [Unknown]
  - Back pain [Unknown]
  - Dyspnoea exertional [Unknown]
  - Pain in extremity [Unknown]
  - Sensation of heaviness [Unknown]
  - Pain in extremity [Unknown]
  - Arthralgia [Unknown]
